FAERS Safety Report 4594732-2 (Version None)
Quarter: 2005Q1

REPORT INFORMATION
  Report Type: 
  Country: None (occurrence: None)
  Receive Date: 20050301
  Receipt Date: 20050128
  Transmission Date: 20050727
  Serious: Yes (Other)
  Sender: FDA-Public Use
  Company Number: US-BRISTOL-MYERS SQUIBB COMPANY-12842449

PATIENT
  Age: 52 Year
  Sex: Male
  Weight: 94 kg

DRUGS (2)
  1. ERBITUX [Suspect]
     Indication: COLON CANCER METASTATIC
     Dosage: LOAD DOSE, ALSO REC'D  12-JAN + 19-JAN (500 MG), DRUG HELD 26-JAN
     Route: 042
     Dates: start: 20041220
  2. BENADRYL [Concomitant]
     Indication: PREMEDICATION
     Dates: start: 20041220

REACTIONS (1)
  - NEUTROPENIA [None]
